FAERS Safety Report 4833160-9 (Version None)
Quarter: 2005Q4

REPORT INFORMATION
  Report Type: 
  Country: None (occurrence: None)
  Receive Date: 20051117
  Receipt Date: 20051104
  Transmission Date: 20060501
  Serious: Yes (Hospitalization, Other)
  Sender: FDA-Public Use
  Company Number: KII-2005-0019413

PATIENT
  Age: 43 Year
  Sex: Female

DRUGS (5)
  1. OXYCODONE HCL [Suspect]
     Indication: PAIN
     Dosage: ORAL
     Route: 048
  2. ACETAMINOPHEN AND HYDROCODONE BITARTRATE [Suspect]
     Indication: PAIN
     Dosage: ORAL
     Route: 048
  3. ETHANOL(ETHANOL) [Suspect]
     Dosage: ORAL
     Route: 048
  4. PHENCYCLIDINE(PHENCYCLIDINE) [Suspect]
     Indication: INTENTIONAL DRUG MISUSE
  5. BENZODIAZEPINE DERIVATIVES [Suspect]

REACTIONS (8)
  - ALANINE AMINOTRANSFERASE ABNORMAL [None]
  - ASPARTATE AMINOTRANSFERASE ABNORMAL [None]
  - BLOOD POTASSIUM DECREASED [None]
  - IMPAIRED DRIVING ABILITY [None]
  - LETHARGY [None]
  - MULTIPLE DRUG OVERDOSE [None]
  - POLYSUBSTANCE ABUSE [None]
  - PROTHROMBIN TIME PROLONGED [None]
